FAERS Safety Report 22318071 (Version 1)
Quarter: 2023Q2

REPORT INFORMATION
  Report Type: Spontaneous
  Country: EE (occurrence: EE)
  Receive Date: 20230515
  Receipt Date: 20230515
  Transmission Date: 20230721
  Serious: Yes (Life-Threatening, Hospitalization)
  Sender: FDA-Public Use
  Company Number: None

PATIENT
  Age: 43 Year
  Sex: Female
  Weight: 89 kg

DRUGS (3)
  1. QUETIAPINE [Concomitant]
     Active Substance: QUETIAPINE
     Indication: Sleep disorder
     Dosage: UNK
  2. LAMOTRIGINE [Concomitant]
     Active Substance: LAMOTRIGINE
     Indication: Bipolar disorder
     Dosage: UNK
  3. OZEMPIC [Suspect]
     Active Substance: SEMAGLUTIDE
     Indication: Weight control
     Dosage: UNK

REACTIONS (4)
  - Metabolic alkalosis [Recovering/Resolving]
  - Hypokalaemia [Recovering/Resolving]
  - Vomiting [Recovering/Resolving]
  - Intentional product misuse [Recovering/Resolving]

NARRATIVE: CASE EVENT DATE: 20230412
